FAERS Safety Report 4503231-5 (Version None)
Quarter: 2004Q4

REPORT INFORMATION
  Report Type: 
  Country: None (occurrence: None)
  Receive Date: 20041112
  Receipt Date: 20041029
  Transmission Date: 20050328
  Serious: Yes (Hospitalization, Other)
  Sender: FDA-Public Use
  Company Number: 2004070526

PATIENT
  Age: 49 Year
  Sex: Male

DRUGS (2)
  1. SORTIS (ATORVASTATIN) [Suspect]
     Indication: ILL-DEFINED DISORDER
     Dosage: ORAL
     Route: 048
  2. CLOPIDOGREL (CLOPIDOGREL) [Suspect]
     Indication: ILL-DEFINED DISORDER

REACTIONS (9)
  - ACUTE CORONARY SYNDROME [None]
  - ATRIAL THROMBOSIS [None]
  - CEREBRAL ISCHAEMIA [None]
  - DRUG INTERACTION [None]
  - FACIAL PALSY [None]
  - RED BLOOD CELL SEDIMENTATION RATE INCREASED [None]
  - SPEECH DISORDER [None]
  - STENT OCCLUSION [None]
  - THROMBOSIS [None]
